FAERS Safety Report 8998487 (Version 1)
Quarter: 2013Q1

REPORT INFORMATION
  Report Type: Spontaneous
  Country: CH (occurrence: CH)
  Receive Date: 20130103
  Receipt Date: 20130103
  Transmission Date: 20140127
  Serious: Yes (Hospitalization, Other)
  Sender: FDA-Public Use
  Company Number: CH-ROCHE-1176179

PATIENT
  Age: 80 None
  Sex: Male

DRUGS (8)
  1. OMALIZUMAB [Suspect]
     Indication: PRODUCT USED FOR UNKNOWN INDICATION
     Route: 065
  2. VANNAIR [Concomitant]
  3. SPIRIVA [Concomitant]
  4. RHINOCORT [Concomitant]
  5. CALCIMAGON-D3 [Concomitant]
  6. VITAMIN D3 [Concomitant]
  7. ALENDRONATE [Concomitant]
  8. PREDNISONE [Concomitant]
     Route: 065
     Dates: start: 20121124

REACTIONS (7)
  - Acquired haemophilia with anti FVIII, XI, or XIII [Unknown]
  - Lung disorder [Unknown]
  - B-lymphocyte abnormalities [Unknown]
  - Allergic granulomatous angiitis [Unknown]
  - Activated partial thromboplastin time prolonged [Unknown]
  - Retroperitoneal haematoma [Unknown]
  - Rectal haemorrhage [Unknown]
